FAERS Safety Report 4674694-X (Version None)
Quarter: 2005Q2

REPORT INFORMATION
  Report Type: 
  Country: None (occurrence: None)
  Receive Date: 20050526
  Receipt Date: 20020508
  Transmission Date: 20051028
  Serious: Yes (Life-Threatening, Hospitalization, Other)
  Sender: FDA-Public Use
  Company Number: US-BRISTOL-MYERS SQUIBB COMPANY-11854395

PATIENT
  Age: 43 Year
  Sex: Male

DRUGS (3)
  1. ATAZANAVIR [Suspect]
     Indication: HIV INFECTION
     Dosage: DOSING INTERRUPTED ON 08 MAY 02
     Route: 048
     Dates: start: 20011105
  2. ZERIT [Suspect]
     Indication: HIV INFECTION
     Dosage: DOSING INTERRUPTED 08 MAY 02
     Route: 048
     Dates: start: 19990621
  3. LAMIVUDINE [Suspect]
     Indication: HIV INFECTION
     Dosage: DOSING INTERRUPTED 08 MAY 02
     Route: 048
     Dates: start: 20000719

REACTIONS (3)
  - BIFASCICULAR BLOCK [None]
  - ELECTROCARDIOGRAM PR PROLONGATION [None]
  - INTENTIONAL MISUSE [None]
